FAERS Safety Report 23981118 (Version 3)
Quarter: 2024Q3

REPORT INFORMATION
  Report Type: Report from Study
  Country: US (occurrence: US)
  Receive Date: 20240617
  Receipt Date: 20240709
  Transmission Date: 20241016
  Serious: Yes (Hospitalization)
  Sender: PFIZER
  Company Number: US-SEATTLE GENETICS-2024SGN05200

PATIENT
  Age: 77 Year
  Sex: Female

DRUGS (2)
  1. TUKYSA [Suspect]
     Active Substance: TUCATINIB
     Indication: Breast cancer female
     Dosage: UNK
  2. TUKYSA [Suspect]
     Active Substance: TUCATINIB
     Dosage: 600 MG, DAILY
     Route: 048
     Dates: start: 20240307

REACTIONS (5)
  - Haemoglobin decreased [Not Recovered/Not Resolved]
  - Pleural effusion [Unknown]
  - Dyspnoea [Unknown]
  - Hypersomnia [Unknown]
  - Product dose omission in error [Unknown]

NARRATIVE: CASE EVENT DATE: 20240613
